FAERS Safety Report 8162952-6 (Version None)
Quarter: 2012Q1

REPORT INFORMATION
  Report Type: 
  Country: None (occurrence: None)
  Receive Date: 20120224
  Receipt Date: 20120210
  Transmission Date: 20120608
  Serious: Yes (Life-Threatening)
  Sender: FDA-Public Use
  Company Number: GB-WATSON-2012-00852

PATIENT
  Age: 35 Year
  Sex: Female
  Weight: 82.6 kg

DRUGS (5)
  1. SEROQUEL [Concomitant]
     Indication: MOOD SWINGS
     Dosage: 300 MG, UNK
     Route: 048
     Dates: start: 20110701, end: 20111218
  2. ZOPICLONE (UNKNOWN) [Suspect]
     Indication: SLEEP DISORDER
     Dosage: 3.75 G, UNK
     Route: 048
     Dates: start: 20111222, end: 20120101
  3. ESCITALOPRAM [Concomitant]
     Indication: ANXIETY
     Dosage: 5 MG, DAILY, EVERY MORNING
     Route: 048
     Dates: start: 20100101, end: 20111218
  4. VALPROATE SODIUM [Suspect]
     Indication: BIPOLAR DISORDER
     Dosage: 200 MG, BID
     Route: 048
     Dates: start: 20111219, end: 20120101
  5. PROPRANOLOL [Concomitant]
     Indication: ANXIETY
     Dosage: 80 MG, UNKNOWN
     Route: 048
     Dates: start: 20110901, end: 20111218

REACTIONS (5)
  - SWELLING [None]
  - RASH ERYTHEMATOUS [None]
  - PRURITUS [None]
  - DYSPHAGIA [None]
  - RASH MACULAR [None]
